FAERS Safety Report 8556461-X (Version None)
Quarter: 2012Q3

REPORT INFORMATION
  Report Type: 
  Country: None (occurrence: None)
  Receive Date: 20120801
  Receipt Date: 20120730
  Transmission Date: 20120928
  Serious: Yes (Life-Threatening, Disabling)
  Sender: FDA-Public Use
  Company Number: PHHY2012GR065457

PATIENT
  Age: 79 Year
  Sex: Female

DRUGS (7)
  1. BUSPIRONE HYDROCHLORIDE [Suspect]
     Indication: INSOMNIA
     Dosage: UNK
     Dates: start: 20120727, end: 20120729
  2. AROMASIN [Concomitant]
     Indication: BREAST CANCER
     Dosage: UNK
     Route: 048
     Dates: start: 20120521, end: 20120729
  3. AMOXIL [Concomitant]
     Indication: INFLAMMATION
     Dosage: UNK
     Dates: start: 20120527
  4. AFINITOR [Suspect]
     Indication: BREAST CANCER
     Dosage: 10 MG, DAILY
     Dates: start: 20120521, end: 20120729
  5. DUFALONE [Concomitant]
     Indication: OEDEMA
     Dosage: UNK
     Dates: start: 20120521, end: 20120729
  6. T4 [Concomitant]
     Indication: HYPERTHYROIDISM
     Dosage: 100 MG, UNK
  7. EXELON [Concomitant]
     Indication: DEMENTIA

REACTIONS (3)
  - SOMNOLENCE [None]
  - PYREXIA [None]
  - LETHARGY [None]
